FAERS Safety Report 8903469 (Version 1)
Quarter: 2012Q4

REPORT INFORMATION
  Report Type: 
  Country: US (occurrence: US)
  Receive Date: 20121112
  Receipt Date: 20121112
  Transmission Date: 20130627
  Serious: No
  Sender: FDA-Public Use
  Company Number: US-ASTRAZENECA-2012SE71099

PATIENT
  Age: 58 Year
  Sex: Male
  Weight: 111.1 kg

DRUGS (6)
  1. SYMBICORT [Suspect]
     Indication: CHRONIC OBSTRUCTIVE PULMONARY DISEASE
     Dosage: Unknown dose and frequency
     Route: 055
  2. LISINOPRIL HCTZ [Suspect]
     Dosage: 20+25 mg 1 tablet, 2 times per day
     Route: 048
  3. KLONOPIN [Suspect]
     Route: 065
  4. TUSSIONEX PENNKINETIC SUSP [Concomitant]
     Dosage: 1 teaspoon, 3 times per day, as needed
  5. SIMVASTATIN [Concomitant]
  6. NORVASC [Concomitant]

REACTIONS (4)
  - Essential hypertension [Unknown]
  - Back pain [Unknown]
  - Hyperlipidaemia [Unknown]
  - Cough [Unknown]
